FAERS Safety Report 20547922 (Version 1)
Quarter: 2022Q1

REPORT INFORMATION
  Report Type: Other
  Country: None (occurrence: CY)
  Receive Date: 20220303
  Receipt Date: 20220303
  Transmission Date: 20220423
  Serious: Yes (Hospitalization)
  Sender: FDA-Public Use
  Company Number: CY-B.Braun Medical Inc.-2126421

PATIENT
  Age: 55 Year
  Sex: Male

DRUGS (3)
  1. SODIUM CHLORIDE [Suspect]
     Active Substance: SODIUM CHLORIDE
  2. POTASSIUM [Concomitant]
     Active Substance: POTASSIUM
  3. METHYLPREDNISOLONE [Concomitant]
     Active Substance: METHYLPREDNISOLONE

REACTIONS (1)
  - Osmotic demyelination syndrome [Recovered/Resolved]
